FAERS Safety Report 6986517-4 (Version None)
Quarter: 2010Q3

REPORT INFORMATION
  Report Type: 
  Country: None (occurrence: None)
  Receive Date: 20100915
  Receipt Date: 20090714
  Transmission Date: 20110219
  Serious: No
  Sender: FDA-Public Use
  Company Number: US-WYE-H10147809

PATIENT
  Sex: Male

DRUGS (2)
  1. PRISTIQ [Suspect]
     Indication: MAJOR DEPRESSION
     Dosage: 50 MG, FREQUENCY NOT SPECIFIED
     Route: 048
  2. PRISTIQ [Suspect]
     Dosage: ^GRADUALLY REDUCED THE DOSE^
     Route: 048

REACTIONS (3)
  - DISORIENTATION [None]
  - DRUG WITHDRAWAL SYNDROME [None]
  - VISUAL IMPAIRMENT [None]
